FAERS Safety Report 13585000 (Version 9)
Quarter: 2017Q3

REPORT INFORMATION
  Report Type: Spontaneous
  Country: KR (occurrence: KR)
  Receive Date: 20170526
  Receipt Date: 20170825
  Transmission Date: 20171127
  Serious: Yes (Other)
  Sender: FDA-Public Use
  Company Number: KR-009507513-1702KOR007918

PATIENT
  Age: 61 Year
  Sex: Female
  Weight: 46.6 kg

DRUGS (57)
  1. EMEND (FOSAPREPITANT DIMEGLUMINE) [Suspect]
     Active Substance: FOSAPREPITANT DIMEGLUMINE
     Indication: PROPHYLAXIS OF NAUSEA AND VOMITING
     Dosage: 150 MG, ONCE
     Route: 042
     Dates: start: 20161025, end: 20161025
  2. EMEND (FOSAPREPITANT DIMEGLUMINE) [Suspect]
     Active Substance: FOSAPREPITANT DIMEGLUMINE
     Dosage: 150 MG, ONCE
     Route: 042
     Dates: start: 20170124, end: 20170124
  3. EMEND (FOSAPREPITANT DIMEGLUMINE) [Suspect]
     Active Substance: FOSAPREPITANT DIMEGLUMINE
     Dosage: 150 MG, ONCE
     Route: 042
     Dates: start: 20170214, end: 20170214
  4. DEXAMETHASONE SODIUM PHOSPHATE. [Concomitant]
     Active Substance: DEXAMETHASONE SODIUM PHOSPHATE
     Indication: PROPHYLAXIS OF NAUSEA AND VOMITING
     Dosage: 12 MG, ONCE, STRENGTH 5MG/ML
     Route: 042
     Dates: start: 20161025, end: 20161025
  5. SANCUSO [Concomitant]
     Active Substance: GRANISETRON
     Dosage: 1 EA, QD, STRENGTH: 80.2X66.6MM2.
     Route: 062
     Dates: start: 20161206, end: 20161212
  6. CURAN [Concomitant]
     Active Substance: RANITIDINE HYDROCHLORIDE
     Indication: PROPHYLAXIS
     Dosage: 50 MG, ONCE; STRENGTH:50MG/2ML
     Route: 042
     Dates: start: 20161025, end: 20161025
  7. CURAN [Concomitant]
     Active Substance: RANITIDINE HYDROCHLORIDE
     Dosage: 50 MG, ONCE; STRENGTH:50MG/2ML
     Route: 042
     Dates: start: 20161207, end: 20161207
  8. LASIX [Concomitant]
     Active Substance: FUROSEMIDE
     Indication: PROPHYLAXIS
     Dosage: 20 MG, ONCE; STRENGTH 20MG/2ML
     Route: 042
     Dates: start: 20161025, end: 20161025
  9. LASIX [Concomitant]
     Active Substance: FUROSEMIDE
     Dosage: 20 MG, ONCE; STRENGTH 20MG/2ML
     Route: 042
     Dates: start: 20161207, end: 20161207
  10. ANZATAX (PACLITAXEL) [Concomitant]
     Active Substance: PACLITAXEL
     Dosage: 246 MG, ONCE, CYCLE 3
     Route: 042
     Dates: start: 20161207, end: 20161207
  11. CISPLAN [Concomitant]
     Active Substance: CISPLATIN
     Dosage: 98 MG, ONCE, CYCLE 2, STRENGTH 50MG/100ML
     Route: 042
     Dates: start: 20161115, end: 20161115
  12. DEXAMETHASONE SODIUM PHOSPHATE. [Concomitant]
     Active Substance: DEXAMETHASONE SODIUM PHOSPHATE
     Dosage: 12 MG, ONCE, STRENGTH 5MG/ML
     Route: 042
     Dates: start: 20161115, end: 20161115
  13. DEXAMETHASONE. [Concomitant]
     Active Substance: DEXAMETHASONE
     Indication: PROPHYLAXIS OF NAUSEA AND VOMITING
     Dosage: 4 MG, BID
     Route: 048
     Dates: start: 20161026, end: 20161028
  14. DEXAMETHASONE. [Concomitant]
     Active Substance: DEXAMETHASONE
     Dosage: 4 MG, BID
     Route: 048
     Dates: start: 20161116, end: 20161118
  15. DEXAMETHASONE. [Concomitant]
     Active Substance: DEXAMETHASONE
     Dosage: 4 MG, BID
     Route: 048
     Dates: start: 20161229, end: 20161231
  16. SANCUSO [Concomitant]
     Active Substance: GRANISETRON
     Indication: PROPHYLAXIS OF NAUSEA AND VOMITING
     Dosage: 1 EA, QD, STRENGTH: 80.2X66.6MM2.
     Route: 062
     Dates: start: 20161024, end: 20161030
  17. SANCUSO [Concomitant]
     Active Substance: GRANISETRON
     Dosage: 1 EA, QD, STRENGTH: 80.2X66.6MM2.
     Route: 062
     Dates: start: 20161227, end: 20170102
  18. CURAN [Concomitant]
     Active Substance: RANITIDINE HYDROCHLORIDE
     Dosage: 50 MG, ONCE; STRENGTH:50MG/2ML
     Route: 042
     Dates: start: 20170214, end: 20170214
  19. CHLORPHENIRAMINE. [Concomitant]
     Active Substance: CHLORPHENIRAMINE
     Dosage: 4 MG, ONCE
     Route: 042
     Dates: start: 20161115, end: 20161115
  20. LASIX [Concomitant]
     Active Substance: FUROSEMIDE
     Dosage: 20 MG, ONCE; STRENGTH 20MG/2ML
     Route: 042
     Dates: start: 20161115, end: 20161115
  21. ANZATAX (PACLITAXEL) [Concomitant]
     Active Substance: PACLITAXEL
     Dosage: 246 MG, ONCE, CYCLE 2
     Route: 042
     Dates: start: 20161115, end: 20161115
  22. ANZATAX (PACLITAXEL) [Concomitant]
     Active Substance: PACLITAXEL
     Dosage: 253 MG, ONCE, CYCLE 5
     Route: 042
     Dates: start: 20170124, end: 20170124
  23. CISPLAN [Concomitant]
     Active Substance: CISPLATIN
     Dosage: 102 MG, ONCE, CYCLE 6, STRENGTH 50MG/100ML
     Route: 042
     Dates: start: 20170214, end: 20170214
  24. DEXAMETHASONE SODIUM PHOSPHATE. [Concomitant]
     Active Substance: DEXAMETHASONE SODIUM PHOSPHATE
     Dosage: 12 MG, ONCE, STRENGTH 5MG/ML
     Route: 042
     Dates: start: 20170214, end: 20170214
  25. CURAN [Concomitant]
     Active Substance: RANITIDINE HYDROCHLORIDE
     Dosage: 50 MG, ONCE; STRENGTH:50MG/2ML
     Route: 042
     Dates: start: 20161115, end: 20161115
  26. CURAN [Concomitant]
     Active Substance: RANITIDINE HYDROCHLORIDE
     Dosage: 50 MG, ONCE; STRENGTH:50MG/2ML
     Route: 042
     Dates: start: 20170124, end: 20170124
  27. CHLORPHENIRAMINE. [Concomitant]
     Active Substance: CHLORPHENIRAMINE
     Dosage: 4 MG, ONCE
     Route: 042
     Dates: start: 20170112, end: 20170112
  28. EMEND (FOSAPREPITANT DIMEGLUMINE) [Suspect]
     Active Substance: FOSAPREPITANT DIMEGLUMINE
     Dosage: 150 MG, ONCE
     Route: 042
     Dates: start: 20161207, end: 20161207
  29. EMEND (FOSAPREPITANT DIMEGLUMINE) [Suspect]
     Active Substance: FOSAPREPITANT DIMEGLUMINE
     Dosage: 150 MG, ONCE
     Route: 042
     Dates: start: 20161228, end: 20161228
  30. ANZATAX (PACLITAXEL) [Concomitant]
     Active Substance: PACLITAXEL
     Dosage: 250 MG, ONCE, CYCLE 4
     Route: 042
     Dates: start: 20161228, end: 20161228
  31. CISPLAN [Concomitant]
     Active Substance: CISPLATIN
     Indication: NON-SMALL CELL LUNG CANCER
     Dosage: 98 MG, ONCE, CYCLE 1, STRENGTH 50MG/100ML
     Route: 042
     Dates: start: 20161025, end: 20161025
  32. LASIX [Concomitant]
     Active Substance: FUROSEMIDE
     Dosage: 20 MG, ONCE; STRENGTH 20MG/2ML
     Route: 042
     Dates: start: 20170124, end: 20170124
  33. LASIX [Concomitant]
     Active Substance: FUROSEMIDE
     Dosage: 20 MG, ONCE; STRENGTH 20MG/2ML
     Route: 042
     Dates: start: 20170214, end: 20170214
  34. EMEND (FOSAPREPITANT DIMEGLUMINE) [Suspect]
     Active Substance: FOSAPREPITANT DIMEGLUMINE
     Dosage: 150 MG, ONCE
     Route: 042
     Dates: start: 20161115, end: 20161115
  35. DEXAMETHASONE SODIUM PHOSPHATE. [Concomitant]
     Active Substance: DEXAMETHASONE SODIUM PHOSPHATE
     Dosage: 12 MG, ONCE, STRENGTH 5MG/ML
     Route: 042
     Dates: start: 20170124, end: 20170124
  36. SANCUSO [Concomitant]
     Active Substance: GRANISETRON
     Dosage: 1 EA, QD, STRENGTH: 80.2X66.6MM2.
     Route: 062
     Dates: start: 20170123, end: 20170129
  37. CHLORPHENIRAMINE. [Concomitant]
     Active Substance: CHLORPHENIRAMINE
     Dosage: 4 MG, ONCE
     Route: 042
     Dates: start: 20161228, end: 20161228
  38. CAVIR [Concomitant]
     Indication: CHRONIC HEPATITIS B
     Dosage: 0.5 MG, QD
     Route: 048
     Dates: start: 20161018
  39. ANZATAX (PACLITAXEL) [Concomitant]
     Active Substance: PACLITAXEL
     Dosage: 257 MG, ONCE, CYCLE 6
     Route: 042
     Dates: start: 20170214, end: 20170214
  40. CISPLAN [Concomitant]
     Active Substance: CISPLATIN
     Dosage: 100 MG, ONCE, CYCLE 4, STRENGTH 50MG/100ML
     Route: 042
     Dates: start: 20161228, end: 20161228
  41. DEXAMETHASONE. [Concomitant]
     Active Substance: DEXAMETHASONE
     Dosage: 4 MG, BID
     Route: 048
     Dates: start: 20170125, end: 20170127
  42. SANCUSO [Concomitant]
     Active Substance: GRANISETRON
     Dosage: 1 EA, QD, STRENGTH: 80.2X66.6MM2.
     Route: 062
     Dates: start: 20161114, end: 20161120
  43. SANCUSO [Concomitant]
     Active Substance: GRANISETRON
     Dosage: 1 EA, QD, STRENGTH: 80.2X66.6MM2.
     Route: 062
     Dates: start: 20170213, end: 20170219
  44. CURAN [Concomitant]
     Active Substance: RANITIDINE HYDROCHLORIDE
     Dosage: 50 MG, ONCE; STRENGTH:50MG/2ML
     Route: 042
     Dates: start: 20161228, end: 20161228
  45. CHLORPHENIRAMINE. [Concomitant]
     Active Substance: CHLORPHENIRAMINE
     Indication: PROPHYLAXIS
     Dosage: 4 MG, ONCE
     Route: 042
     Dates: start: 20161025, end: 20161025
  46. ANZATAX (PACLITAXEL) [Concomitant]
     Active Substance: PACLITAXEL
     Indication: NON-SMALL CELL LUNG CANCER
     Dosage: 245 MG, ONCE, CYCLE 1
     Route: 042
     Dates: start: 20161025, end: 20161025
  47. DEXAMETHASONE SODIUM PHOSPHATE. [Concomitant]
     Active Substance: DEXAMETHASONE SODIUM PHOSPHATE
     Dosage: 12 MG, ONCE, STRENGTH 5MG/ML
     Route: 042
     Dates: start: 20161228, end: 20161228
  48. GLIATILIN [Concomitant]
     Active Substance: CHOLINE ALFOSCERATE
     Indication: PROPHYLAXIS
     Dosage: 400 MG, TID
     Route: 048
     Dates: start: 20160317, end: 20161018
  49. CHLORPHENIRAMINE. [Concomitant]
     Active Substance: CHLORPHENIRAMINE
     Dosage: 4 MG, ONCE
     Route: 042
     Dates: start: 20161207, end: 20161207
  50. CHLORPHENIRAMINE. [Concomitant]
     Active Substance: CHLORPHENIRAMINE
     Dosage: 4 MG, ONCE
     Route: 042
     Dates: start: 20170214, end: 20170214
  51. CISPLAN [Concomitant]
     Active Substance: CISPLATIN
     Dosage: 98 MG, ONCE, CYCLE 3, STRENGTH 50MG/100ML
     Route: 042
     Dates: start: 20161207, end: 20161207
  52. CISPLAN [Concomitant]
     Active Substance: CISPLATIN
     Dosage: 101 MG, ONCE, CYCLE 5, STRENGTH 50MG/100ML
     Route: 042
     Dates: start: 20170124, end: 20170124
  53. DEXAMETHASONE SODIUM PHOSPHATE. [Concomitant]
     Active Substance: DEXAMETHASONE SODIUM PHOSPHATE
     Dosage: 12 MG, ONCE, STRENGTH 5MG/ML
     Route: 042
     Dates: start: 20161207, end: 20161207
  54. DEXAMETHASONE. [Concomitant]
     Active Substance: DEXAMETHASONE
     Dosage: 4 MG, BID
     Route: 048
     Dates: start: 20161208, end: 20161210
  55. DEXAMETHASONE. [Concomitant]
     Active Substance: DEXAMETHASONE
     Dosage: 4 MG, BID
     Route: 048
     Dates: start: 20170215, end: 20170217
  56. CENTRUM (MINERALS (UNSPECIFIED) (+) VITAMINS (UNSPECIFIED)) [Concomitant]
     Indication: PROPHYLAXIS
     Dosage: 1 TABLET, QD
     Route: 048
     Dates: start: 20160416, end: 20161227
  57. CHLORPHENIRAMINE. [Concomitant]
     Active Substance: CHLORPHENIRAMINE
     Dosage: 4 MG, ONCE
     Route: 042
     Dates: start: 20170124, end: 20170124

REACTIONS (9)
  - Rhinorrhoea [Recovered/Resolved]
  - Paraesthesia [Recovered/Resolved]
  - Cough [Recovered/Resolved]
  - Pharyngitis [Recovered/Resolved]
  - Productive cough [Recovered/Resolved]
  - Cough [Recovered/Resolved]
  - Diarrhoea [Recovered/Resolved]
  - Cough [Recovered/Resolved]
  - Neutropenia [Recovered/Resolved]

NARRATIVE: CASE EVENT DATE: 20161025
